FAERS Safety Report 20289491 (Version 1)
Quarter: 2022Q1

REPORT INFORMATION
  Report Type: Spontaneous
  Country: TH (occurrence: TH)
  Receive Date: 20220104
  Receipt Date: 20220104
  Transmission Date: 20220423
  Serious: Yes (Other)
  Sender: FDA-Public Use
  Company Number: TH-NOVARTISPH-NVSC2021TH296935

PATIENT
  Age: 59 Year
  Sex: Male

DRUGS (3)
  1. CYCLOSPORINE [Suspect]
     Active Substance: CYCLOSPORINE
     Indication: Product used for unknown indication
     Dosage: UNK, ADJUST DOSE BY DRUG LEVEL (100-150 NG/ML)
     Route: 065
  2. MYCOPHENOLATE MOFETIL [Concomitant]
     Active Substance: MYCOPHENOLATE MOFETIL
     Indication: Product used for unknown indication
     Dosage: 1.5 G, QD
     Route: 065
  3. PREDNISOLONE [Concomitant]
     Active Substance: PREDNISOLONE
     Indication: Product used for unknown indication
     Dosage: UNK, SLOWLY TAPPER
     Route: 065

REACTIONS (9)
  - Chronic allograft nephropathy [Unknown]
  - Renal tubular atrophy [Unknown]
  - Transplant rejection [Unknown]
  - Kidney fibrosis [Unknown]
  - Glomerular vascular disorder [Unknown]
  - Blood creatinine increased [Unknown]
  - Vascular hyalinosis [Unknown]
  - Toxicity to various agents [Unknown]
  - Urine output increased [Unknown]
